FAERS Safety Report 7458233-6 (Version None)
Quarter: 2011Q2

REPORT INFORMATION
  Report Type: 
  Country: None (occurrence: None)
  Receive Date: 20110504
  Receipt Date: 20110420
  Transmission Date: 20111010
  Serious: Yes (Life-Threatening, Hospitalization, Other)
  Sender: FDA-Public Use
  Company Number: JP-JNJFOC-20101106903

PATIENT
  Sex: Female
  Weight: 44 kg

DRUGS (25)
  1. EPENARD [Concomitant]
     Route: 048
  2. MECOBAMIDE [Concomitant]
     Dosage: DOSE 500 RG 3 TIMES DAILY
     Route: 048
  3. TRANSAMIN [Concomitant]
     Indication: OROPHARYNGEAL PAIN
     Route: 048
  4. REMICADE [Suspect]
     Dosage: 1 INFUSION
     Route: 042
  5. CINAL [Concomitant]
     Route: 048
  6. SELBEX [Concomitant]
     Route: 048
  7. HYALEIN [Concomitant]
  8. ROZECLART [Concomitant]
     Indication: ANTIBIOTIC THERAPY
  9. MAXIPIME [Concomitant]
  10. KLARICID [Concomitant]
     Route: 048
  11. RHEUMATREX [Concomitant]
     Indication: RHEUMATOID ARTHRITIS
  12. CEFZON [Concomitant]
     Indication: ANTIBIOTIC THERAPY
     Route: 048
  13. RIFADIN [Concomitant]
     Route: 048
  14. REMICADE [Suspect]
     Dosage: 19TH INFUSION
     Route: 042
  15. ISONIAZID [Concomitant]
     Route: 048
  16. PELEX [Concomitant]
     Indication: ANTIPYRESIS
     Route: 048
  17. MIDOCIN [Concomitant]
     Indication: ANTIBIOTIC THERAPY
  18. MEROPENEM [Concomitant]
  19. ASPIRIN [Concomitant]
     Route: 048
  20. FOLIC ACID [Concomitant]
     Route: 048
  21. MUCODYNE [Concomitant]
     Indication: PRODUCTIVE COUGH
     Route: 048
  22. REMICADE [Suspect]
     Indication: RHEUMATOID ARTHRITIS
     Route: 042
  23. D-ALFA [Concomitant]
     Dosage: DOSE 1 RG DAILY
     Route: 048
  24. ASPARA-CA [Concomitant]
     Route: 048
  25. ESANBUTOL [Concomitant]
     Route: 048

REACTIONS (3)
  - DISSEMINATED TUBERCULOSIS [None]
  - PYREXIA [None]
  - SHOCK [None]
